FAERS Safety Report 9503775 (Version 1)
Quarter: 2013Q3

REPORT INFORMATION
  Report Type: Spontaneous
  Country: CO (occurrence: CO)
  Receive Date: 20130906
  Receipt Date: 20130906
  Transmission Date: 20140515
  Serious: Yes (Hospitalization)
  Sender: FDA-Public Use
  Company Number: CO-UCBSA-097383

PATIENT
  Age: 43 Year
  Sex: Female

DRUGS (4)
  1. CIMZIA [Suspect]
     Indication: RHEUMATOID ARTHRITIS
     Route: 058
     Dates: start: 20130202, end: 20130717
  2. METHOTREXATE [Concomitant]
  3. PREDNISOLONE [Concomitant]
  4. ACETAMINOPHEN [Concomitant]

REACTIONS (4)
  - Thrombosis [Unknown]
  - Cerebral infarction [Unknown]
  - Medical induction of coma [Not Recovered/Not Resolved]
  - Brain oedema [Unknown]
